FAERS Safety Report 11910751 (Version 1)
Quarter: 2016Q1

REPORT INFORMATION
  Report Type: Spontaneous
  Country: US (occurrence: None)
  Receive Date: 20160111
  Receipt Date: 20160111
  Transmission Date: 20160526
  Serious: No
  Sender: FDA-Public Use
  Company Number: None

PATIENT
  Age: 53 Year
  Sex: Female
  Weight: 136.08 kg

DRUGS (16)
  1. VITAMION D 2 [Concomitant]
  2. LOSARTAN (COOZAR) [Concomitant]
  3. SINGULAIR [Concomitant]
     Active Substance: MONTELUKAST SODIUM
  4. DULERA [Concomitant]
     Active Substance: FORMOTEROL FUMARATE DIHYDRATE\MOMETASONE FUROATE
  5. MELATONIN [Concomitant]
     Active Substance: MELATONIN
  6. XARELTO [Suspect]
     Active Substance: RIVAROXABAN
     Indication: PULMONARY EMBOLISM
     Dosage: 15/20 ONE PILL TWICE A DAY ONCE A DAY
     Route: 048
     Dates: start: 20151119
  7. NORTRIPTYLINE )PAMELOR) [Concomitant]
  8. MORPHINE SULFATE IR TABLET [Concomitant]
     Active Substance: MORPHINE SULFATE
  9. VENTOLIN HFA [Concomitant]
     Active Substance: ALBUTEROL SULFATE
  10. KADIAN [Concomitant]
     Active Substance: MORPHINE SULFATE
  11. FERROUS SULFATE (IRON) [Concomitant]
  12. LEVOTHYROX [Concomitant]
     Active Substance: LEVOTHYROXINE
  13. NYSTATIN CREAM [Concomitant]
     Active Substance: NYSTATIN
  14. REPLENS [Concomitant]
     Active Substance: CARBOMER 934\GLYCERIN\METHYLPARABEN\PROPYLPARABEN\SODIUM HYDROXIDE
  15. ALBUTEROL SULFATE. [Concomitant]
     Active Substance: ALBUTEROL SULFATE
  16. BUDESONIDE. [Concomitant]
     Active Substance: BUDESONIDE

REACTIONS (2)
  - Condition aggravated [None]
  - Cancer pain [None]
